FAERS Safety Report 5799160-X (Version None)
Quarter: 2008Q3

REPORT INFORMATION
  Report Type: 
  Country: None (occurrence: None)
  Receive Date: 20080702
  Receipt Date: 20080630
  Transmission Date: 20090109
  Serious: Yes (Hospitalization, Other)
  Sender: FDA-Public Use
  Company Number: US-PFIZER INC-2008017054

PATIENT
  Sex: Male

DRUGS (2)
  1. BEXTRA [Suspect]
  2. CELEBREX [Suspect]

REACTIONS (4)
  - CEREBROVASCULAR ACCIDENT [None]
  - INSOMNIA [None]
  - MYOCARDIAL INFARCTION [None]
  - NERVOUSNESS [None]
